FAERS Safety Report 4697422-0 (Version None)
Quarter: 2005Q2

REPORT INFORMATION
  Report Type: 
  Country: None (occurrence: None)
  Receive Date: 20050621
  Receipt Date: 20050603
  Transmission Date: 20051028
  Serious: Yes (Death, Other)
  Sender: FDA-Public Use
  Company Number: US_0506118408

PATIENT

DRUGS (1)
  1. ZYPREXA [Suspect]
     Indication: ANXIETY
     Dates: start: 19980101

REACTIONS (1)
  - PANCREATITIS [None]
